FAERS Safety Report 20855984 (Version 1)
Quarter: 2022Q2

REPORT INFORMATION
  Report Type: Report from Study
  Country: FI (occurrence: FI)
  Receive Date: 20220520
  Receipt Date: 20220520
  Transmission Date: 20220720
  Serious: Yes (Other)
  Sender: FDA-Public Use
  Company Number: FI-MYLANLABS-2022M1037853

PATIENT
  Age: 75 Year
  Sex: Female

DRUGS (1)
  1. CLOZAPINE [Suspect]
     Active Substance: CLOZAPINE
     Indication: Product used for unknown indication
     Dosage: UNK

REACTIONS (4)
  - Mental impairment [Unknown]
  - Antipsychotic drug level increased [Unknown]
  - General physical health deterioration [Unknown]
  - Dyskinesia [Unknown]
